FAERS Safety Report 7165414-8 (Version None)
Quarter: 2010Q4

REPORT INFORMATION
  Report Type: 
  Country: None (occurrence: None)
  Receive Date: 20101215
  Receipt Date: 20100105
  Transmission Date: 20110411
  Serious: Yes (Other)
  Sender: FDA-Public Use
  Company Number: US-AMGEN-QUU382757

PATIENT

DRUGS (2)
  1. ENBREL [Suspect]
     Indication: PSORIASIS
     Dosage: 50 MG, 2 TIMES/WK
     Route: 058
     Dates: start: 20090831, end: 20091116
  2. DESVENLAFAXINE [Concomitant]
     Dosage: UNK UNK, UNK
     Dates: start: 20090801, end: 20091101

REACTIONS (4)
  - ANXIETY [None]
  - DEPRESSION [None]
  - HYPOKINESIA [None]
  - LETHARGY [None]
